FAERS Safety Report 6806464-8 (Version None)
Quarter: 2010Q2

REPORT INFORMATION
  Report Type: 
  Country: None (occurrence: None)
  Receive Date: 20100629
  Receipt Date: 20080226
  Transmission Date: 20101027
  Serious: No
  Sender: FDA-Public Use
  Company Number: US-PFIZER INC-2008014217

PATIENT
  Sex: Male
  Weight: 75.9 kg

DRUGS (5)
  1. VIAGRA [Suspect]
     Indication: ERECTILE DYSFUNCTION
     Dates: start: 20080101
  2. CYMBALTA [Concomitant]
     Indication: DEPRESSION
  3. PRINZIDE [Concomitant]
     Indication: HYPERTENSION
     Dosage: 20MG/12.5MG
  4. GLUCOPHAGE [Concomitant]
     Indication: TYPE 2 DIABETES MELLITUS
  5. GLYBURIDE [Concomitant]
     Indication: TYPE 2 DIABETES MELLITUS

REACTIONS (1)
  - DRUG INEFFECTIVE [None]
